FAERS Safety Report 16749733 (Version 2)
Quarter: 2019Q3

REPORT INFORMATION
  Report Type: Spontaneous
  Country: US (occurrence: US)
  Receive Date: 20190828
  Receipt Date: 20190904
  Transmission Date: 20191005
  Serious: No
  Sender: FDA-Public Use
  Company Number: US-KYOWAKIRIN-2019BKK013322

PATIENT

DRUGS (2)
  1. CRYSVITA [Suspect]
     Active Substance: BUROSUMAB-TWZA
     Indication: HYPOPHOSPHATAEMIA
     Dosage: 20 MG, EVERY 2 WEEKS
     Route: 058
     Dates: start: 20190724, end: 2019
  2. CRYSVITA [Suspect]
     Active Substance: BUROSUMAB-TWZA
     Dosage: 20 MG, EVERY 2 WEEKS
     Route: 058
     Dates: start: 20190826

REACTIONS (6)
  - Restlessness [Recovered/Resolved]
  - Back pain [Recovered/Resolved]
  - Inappropriate schedule of product administration [Recovered/Resolved]
  - Fall [Recovered/Resolved]
  - Pain [Recovered/Resolved]
  - Initial insomnia [Recovered/Resolved]

NARRATIVE: CASE EVENT DATE: 2019
